FAERS Safety Report 5615536-5 (Version None)
Quarter: 2008Q1

REPORT INFORMATION
  Report Type: 
  Country: None (occurrence: None)
  Receive Date: 20080204
  Receipt Date: 20080204
  Transmission Date: 20080703
  Serious: Yes (Life-Threatening, Hospitalization, Disabling)
  Sender: FDA-Public Use
  Company Number: None

PATIENT
  Age: 66 Year
  Sex: Female
  Weight: 107.9561 kg

DRUGS (2)
  1. CEFTRIAXONE [Suspect]
     Indication: STAPHYLOCOCCAL INFECTION
     Dosage: 100 U/ML 5ML DAILY OTHER
     Route: 050
     Dates: start: 20071121, end: 20080103
  2. SODIUM CHLORIDE 0.9% [Suspect]
     Dates: start: 20071121, end: 20080103

REACTIONS (3)
  - BLOOD DISORDER [None]
  - INFECTION [None]
  - WHITE BLOOD CELL COUNT DECREASED [None]
